FAERS Safety Report 15143169 (Version 1)
Quarter: 2018Q3

REPORT INFORMATION
  Report Type: Spontaneous
  Country: US (occurrence: US)
  Receive Date: 20180618
  Receipt Date: 20180618
  Transmission Date: 20181010
  Serious: Yes (Other)
  Sender: FDA-Public Use
  Company Number: None

PATIENT
  Age: 15 Year
  Sex: Male
  Weight: 71.6 kg

DRUGS (1)
  1. ETOPOSIDE. [Suspect]
     Active Substance: ETOPOSIDE
     Indication: HODGKIN^S DISEASE
     Dosage: ?          OTHER STRENGTH:1/50 G/ML;?
     Route: 042

REACTIONS (4)
  - Tongue disorder [None]
  - Chest discomfort [None]
  - Speech disorder [None]
  - Abdominal pain upper [None]

NARRATIVE: CASE EVENT DATE: 20180321
